FAERS Safety Report 24352551 (Version 1)
Quarter: 2024Q3

REPORT INFORMATION
  Report Type: Spontaneous
  Country: US (occurrence: US)
  Receive Date: 20240923
  Receipt Date: 20240923
  Transmission Date: 20241016
  Serious: No
  Sender: BAYER
  Company Number: US-BAYER-2024A132646

PATIENT
  Age: 22 Year
  Sex: Female

DRUGS (3)
  1. MIRENA [Suspect]
     Active Substance: LEVONORGESTREL
     Indication: Intrauterine contraception
     Dosage: 20?G/DAY
     Route: 015
     Dates: start: 202406
  2. COSENTYX [Concomitant]
     Active Substance: SECUKINUMAB
  3. ENBREL [Concomitant]
     Active Substance: ETANERCEPT

REACTIONS (1)
  - Back pain [None]

NARRATIVE: CASE EVENT DATE: 20240101
